FAERS Safety Report 4535950-9 (Version None)
Quarter: 2004Q4

REPORT INFORMATION
  Report Type: 
  Country: None (occurrence: None)
  Receive Date: 20041222
  Receipt Date: 20041222
  Transmission Date: 20050328
  Serious: Yes (Other)
  Sender: FDA-Public Use
  Company Number: None

PATIENT
  Age: 72 Year
  Sex: Female
  Weight: 63.5036 kg

DRUGS (2)
  1. NABUMETONE [Suspect]
     Indication: PAIN
     Dosage: 500 MG / DAILY ORAL
     Route: 048
     Dates: start: 20020401
  2. VYTORIN [Suspect]
     Indication: BLOOD CHOLESTEROL INCREASED
     Dosage: 10 MG DAILY ORAL
     Route: 048
     Dates: start: 20040801

REACTIONS (2)
  - DRUG HYPERSENSITIVITY [None]
  - PHARMACEUTICAL PRODUCT COMPLAINT [None]
